FAERS Safety Report 20080395 (Version 1)
Quarter: 2021Q4

REPORT INFORMATION
  Report Type: Spontaneous
  Country: US (occurrence: None)
  Receive Date: 20211116
  Receipt Date: 20211116
  Transmission Date: 20220303
  Serious: No
  Sender: FDA-Public Use
  Company Number: None

PATIENT
  Sex: Male
  Weight: 62.60 kg

DRUGS (7)
  1. MEKTOVI [Suspect]
     Active Substance: BINIMETINIB
     Indication: Malignant melanoma
     Dosage: FREQUENCY : TWICE A DAY;?
     Route: 048
  2. PROSCAR [Concomitant]
     Active Substance: FINASTERIDE
  3. LOVASTATIN [Concomitant]
     Active Substance: LOVASTATIN
  4. VITAMINS [Concomitant]
     Active Substance: VITAMINS
  5. RAMIPRIL [Concomitant]
     Active Substance: RAMIPRIL
  6. TAMOSULOSIN [Concomitant]
  7. WARFARIN [Concomitant]
     Active Substance: WARFARIN

REACTIONS (2)
  - Drug intolerance [None]
  - Nonspecific reaction [None]
